FAERS Safety Report 6582589-X (Version None)
Quarter: 2010Q1

REPORT INFORMATION
  Report Type: 
  Country: None (occurrence: None)
  Receive Date: 20100212
  Receipt Date: 20100212
  Transmission Date: 20100710
  Serious: Yes (Hospitalization)
  Sender: FDA-Public Use
  Company Number: None

PATIENT
  Age: 61 Year
  Sex: Male

DRUGS (1)
  1. LISINOPRIL [Suspect]
     Indication: HYPERTENSION
     Dosage: 40 MG EVERY DAY PO
     Route: 048
     Dates: start: 19951101, end: 20100124

REACTIONS (5)
  - ABDOMINAL PAIN [None]
  - ANGIOEDEMA [None]
  - SENSATION OF PRESSURE [None]
  - SPEECH DISORDER [None]
  - VOMITING [None]
